FAERS Safety Report 12404100 (Version 1)
Quarter: 2016Q2

REPORT INFORMATION
  Report Type: Spontaneous
  Country: US (occurrence: US)
  Receive Date: 20160525
  Receipt Date: 20160525
  Transmission Date: 20160815
  Serious: No
  Sender: FDA-Public Use
  Company Number: US-SA-2015SA062727

PATIENT
  Age: 54 Year
  Sex: Female

DRUGS (2)
  1. OXALIPLATIN WINTHROP [Suspect]
     Active Substance: OXALIPLATIN
     Indication: COLON CANCER
     Dosage: DOSE: 1 VIAL??DOSAGE STRENGTH: 100 MG AND 50 MG.
     Route: 065
     Dates: start: 20150506
  2. OXALIPLATIN WINTHROP [Suspect]
     Active Substance: OXALIPLATIN
     Indication: COLON CANCER
     Dosage: DOSE: 1 VIAL??DOSAGE STRENGTH: 100 MG AND 50 MG.
     Route: 065
     Dates: start: 20150506

REACTIONS (3)
  - Nasopharyngitis [Unknown]
  - Hypoaesthesia [Unknown]
  - Paraesthesia [Unknown]

NARRATIVE: CASE EVENT DATE: 201505
